FAERS Safety Report 7033424-7 (Version None)
Quarter: 2010Q4

REPORT INFORMATION
  Report Type: 
  Country: None (occurrence: None)
  Receive Date: 20101007
  Receipt Date: 20100929
  Transmission Date: 20110411
  Serious: Yes (Hospitalization)
  Sender: FDA-Public Use
  Company Number: A0883339A

PATIENT
  Sex: Female

DRUGS (2)
  1. OFATUMUMAB [Suspect]
     Route: 042
  2. LENALIDOMIDE [Suspect]
     Dosage: 10MG PER DAY
     Route: 048
     Dates: start: 20100715

REACTIONS (3)
  - DYSPNOEA [None]
  - HYPOXIA [None]
  - PULMONARY EMBOLISM [None]
